FAERS Safety Report 23841062 (Version 2)
Quarter: 2024Q2

REPORT INFORMATION
  Report Type: Spontaneous
  Country: US (occurrence: US)
  Receive Date: 20240510
  Receipt Date: 20240524
  Transmission Date: 20240716
  Serious: No
  Sender: FDA-Public Use
  Company Number: US-862174955-ML2024-02855

PATIENT
  Age: 70 Year
  Sex: Female

DRUGS (2)
  1. DORZOLAMIDE HYDROCHLORIDE\TIMOLOL MALEATE [Suspect]
     Active Substance: DORZOLAMIDE HYDROCHLORIDE\TIMOLOL MALEATE
     Indication: Glaucoma
     Dosage: STRENGTH: 2% / 0.5%?DOSE: ONE DROP IN EACH EYE, TWICE A DAY.
     Route: 047
     Dates: start: 20240315
  2. KETOROLAC TROMETHAMINE [Concomitant]
     Active Substance: KETOROLAC TROMETHAMINE
     Indication: Product used for unknown indication
     Route: 047

REACTIONS (3)
  - Intraocular pressure increased [Recovering/Resolving]
  - Product container issue [Recovering/Resolving]
  - Wrong technique in product usage process [Recovering/Resolving]
